FAERS Safety Report 9370970 (Version 1)
Quarter: 2013Q2

REPORT INFORMATION
  Report Type: Spontaneous
  Country: BR (occurrence: BR)
  Receive Date: 20130627
  Receipt Date: 20130627
  Transmission Date: 20140414
  Serious: Yes (Other)
  Sender: FDA-Public Use
  Company Number: BR-ROCHE-1135055

PATIENT
  Age: 37 Year
  Sex: Female
  Weight: 55 kg

DRUGS (4)
  1. ROACUTAN [Suspect]
     Indication: PRODUCT USED FOR UNKNOWN INDICATION
     Route: 065
     Dates: start: 1994
  2. RIVOTRIL [Suspect]
     Indication: ANXIETY
     Dosage: 5-8 DROPS, AS NEEDED
     Route: 048
     Dates: start: 201112
  3. RIVOTRIL [Suspect]
     Indication: DEPRESSION
  4. OMEPRAZOLE [Concomitant]
     Route: 065

REACTIONS (12)
  - Convulsion [Recovered/Resolved]
  - Depression [Unknown]
  - Lip dry [Not Recovered/Not Resolved]
  - Constipation [Not Recovered/Not Resolved]
  - Aphthous stomatitis [Recovered/Resolved]
  - Blood zinc decreased [Unknown]
  - Acne [Unknown]
  - Alopecia [Unknown]
  - Pain [Recovered/Resolved]
  - Anxiety [Unknown]
  - Libido decreased [Not Recovered/Not Resolved]
  - Nervousness [Not Recovered/Not Resolved]
